FAERS Safety Report 14897631 (Version 6)
Quarter: 2018Q3

REPORT INFORMATION
  Report Type: Report from Study
  Country: FR (occurrence: FR)
  Receive Date: 20180515
  Receipt Date: 20180731
  Transmission Date: 20181010
  Serious: Yes (Hospitalization)
  Sender: FDA-Public Use
  Company Number: FR-SHIRE-FR201818197

PATIENT

DRUGS (6)
  1. BACTRIM [Concomitant]
     Active Substance: SULFAMETHOXAZOLE\TRIMETHOPRIM
     Indication: ANTI-INFECTIVE THERAPY
  2. METHOTREXATE. [Suspect]
     Active Substance: METHOTREXATE
     Indication: ACUTE LYMPHOCYTIC LEUKAEMIA
     Dosage: 12 MG, 1X/DAY:QD
     Route: 037
     Dates: start: 20180416, end: 20180416
  3. DOXORUBICIN [Suspect]
     Active Substance: DOXORUBICIN
     Indication: ACUTE LYMPHOCYTIC LEUKAEMIA
     Dosage: 14.4 MG, 1X/DAY:QD
     Route: 042
     Dates: start: 20180413, end: 20180427
  4. VINCRISTINE [Suspect]
     Active Substance: VINCRISTINE
     Indication: ACUTE LYMPHOCYTIC LEUKAEMIA
     Dosage: 0.85 MG, 1X/DAY:QD
     Route: 042
     Dates: start: 20180413, end: 20180427
  5. DEXAMETHASONE. [Suspect]
     Active Substance: DEXAMETHASONE
     Indication: ACUTE LYMPHOCYTIC LEUKAEMIA
     Dosage: 5 MG, 1X/DAY:QD
     Route: 048
     Dates: start: 20180413, end: 20180427
  6. PEGASPARGASE [Suspect]
     Active Substance: PEGASPARGASE
     Indication: ACUTE LYMPHOCYTIC LEUKAEMIA
     Dosage: 712.5 IU, UNK
     Route: 042
     Dates: start: 20180416, end: 20180416

REACTIONS (1)
  - Dehydration [Recovered/Resolved]

NARRATIVE: CASE EVENT DATE: 20180427
